FAERS Safety Report 8061635 (Version 2)
Quarter: 2013Q1

REPORT INFORMATION
  Report Type: Spontaneous
  Country: GB (occurrence: GB)
  Receive Date: 20110729
  Receipt Date: 20130116
  Transmission Date: 20140127
  Serious: No
  Sender: FDA-Public Use
  Company Number: GB-ASTRAZENECA-2011SE43250

PATIENT
  Age: 57 Year
  Sex: Female

DRUGS (15)
  1. SEROQUEL [Suspect]
     Indication: HYPOMANIA
     Route: 048
  2. SEROQUEL [Suspect]
     Indication: SLEEP DISORDER
     Route: 048
  3. SEROQUEL [Suspect]
     Indication: HYPOMANIA
     Route: 048
  4. SEROQUEL [Suspect]
     Indication: SLEEP DISORDER
     Route: 048
  5. SEROQUEL [Suspect]
     Indication: HYPOMANIA
     Route: 048
  6. SEROQUEL [Suspect]
     Indication: SLEEP DISORDER
     Route: 048
  7. SEROQUEL [Suspect]
     Indication: HYPOMANIA
     Route: 048
  8. SEROQUEL [Suspect]
     Indication: SLEEP DISORDER
     Route: 048
  9. SEROQUEL [Suspect]
     Indication: HYPOMANIA
     Dosage: 25 MG, ACCORD PRODUCT (GENERIC)
     Route: 048
  10. SEROQUEL [Suspect]
     Indication: SLEEP DISORDER
     Dosage: 25 MG, ACCORD PRODUCT (GENERIC)
     Route: 048
  11. OLANZAPINE [Concomitant]
  12. VALIUM [Concomitant]
  13. EPILIM CHRONO [Concomitant]
  14. CLARITHROMYCIN [Concomitant]
     Indication: LOWER RESPIRATORY TRACT INFECTION
  15. HALOPERIDOL [Concomitant]

REACTIONS (4)
  - Lower respiratory tract infection [Unknown]
  - Local swelling [Unknown]
  - Off label use [Unknown]
  - Intentional drug misuse [Unknown]
